FAERS Safety Report 14684832 (Version 2)
Quarter: 2018Q2

REPORT INFORMATION
  Report Type: Spontaneous
  Country: TR (occurrence: TR)
  Receive Date: 20180327
  Receipt Date: 20180419
  Transmission Date: 20180711
  Serious: Yes (Other)
  Sender: FDA-Public Use
  Company Number: TR-TELIGENT, INC-IGIL20180164

PATIENT
  Age: 90 Year
  Sex: Male

DRUGS (1)
  1. CEFUROXIME SODIUM. [Suspect]
     Active Substance: CEFUROXIME SODIUM
     Indication: URINARY TRACT INFECTION
     Dosage: 750 MG
     Route: 030

REACTIONS (4)
  - Kounis syndrome [Recovered/Resolved]
  - Chest pain [Recovered/Resolved]
  - Rash pruritic [Recovered/Resolved]
  - Leukocytosis [Unknown]
